FAERS Safety Report 17288890 (Version 2)
Quarter: 2020Q4

REPORT INFORMATION
  Report Type: Spontaneous
  Country: US (occurrence: US)
  Receive Date: 20200120
  Receipt Date: 20201021
  Transmission Date: 20210113
  Serious: No
  Sender: FDA-Public Use
  Company Number: US-INSMED, INC.-US-INS-19-03921

PATIENT
  Sex: Female
  Weight: 60.3 kg

DRUGS (2)
  1. ARIKAYCE [Suspect]
     Active Substance: AMIKACIN
     Indication: MYCOBACTERIAL INFECTION
     Route: 055
     Dates: start: 20191119
  2. ARIKAYCE [Suspect]
     Active Substance: AMIKACIN
     Route: 055

REACTIONS (2)
  - Off label use [Unknown]
  - Aphonia [Unknown]

NARRATIVE: CASE EVENT DATE: 2019
